FAERS Safety Report 15336271 (Version 1)
Quarter: 2018Q3

REPORT INFORMATION
  Report Type: Spontaneous
  Country: GB (occurrence: GB)
  Receive Date: 20180830
  Receipt Date: 20180830
  Transmission Date: 20181010
  Serious: Yes (Life-Threatening, Hospitalization, Disabling, Congenital Anomaly, Other)
  Sender: FDA-Public Use
  Company Number: GB-B.I. PHARMACEUTICALS,INC./RIDGEFIELD-2018-12-002928

PATIENT
  Sex: Female
  Weight: 2.2 kg

DRUGS (13)
  1. NOVORAPID [Concomitant]
     Active Substance: INSULIN ASPART
     Indication: PRODUCT USED FOR UNKNOWN INDICATION
     Dosage: UNK
     Route: 064
  2. APTIVUS [Suspect]
     Active Substance: TIPRANAVIR
     Indication: HIV INFECTION
     Dosage: UNK, U
     Route: 064
     Dates: start: 20060905, end: 20081023
  3. ZIDOVUDINE. [Suspect]
     Active Substance: ZIDOVUDINE
     Dosage: UNK, U
     Route: 064
  4. NORVIR [Suspect]
     Active Substance: RITONAVIR
     Indication: HIV INFECTION
     Dosage: UNK, U CUMULATIVE DOSE TO FIRST REACTION(NO.) 24208.33 MG
     Route: 064
     Dates: start: 20060905
  5. ENFUVIRTIDE. [Concomitant]
     Active Substance: ENFUVIRTIDE
     Indication: PRODUCT USED FOR UNKNOWN INDICATION
     Dosage: UNK
     Route: 064
  6. ISENTRESS [Suspect]
     Active Substance: RALTEGRAVIR POTASSIUM
     Indication: HIV INFECTION
     Route: 064
     Dates: start: 20081023, end: 20090221
  7. TRUVADA [Suspect]
     Active Substance: EMTRICITABINE\TENOFOVIR DISOPROXIL FUMARATE
     Indication: HIV INFECTION
     Route: 064
     Dates: start: 20070605, end: 20081023
  8. OXYGEN. [Concomitant]
     Active Substance: OXYGEN
     Indication: PRODUCT USED FOR UNKNOWN INDICATION
     Dosage: UNK
     Route: 064
  9. ZIDOVUDINE. [Suspect]
     Active Substance: ZIDOVUDINE
     Indication: HIV INFECTION
     Route: 064
  10. PREZISTA [Suspect]
     Active Substance: DARUNAVIR ETHANOLATE
     Indication: HIV INFECTION
     Dosage: UNK UNK, U CUMULATIVE DOSE TO FIRST REACTION(NO.) 145250MG
     Route: 064
     Dates: start: 20081023
  11. NITROUS OXIDE. [Concomitant]
     Active Substance: NITROUS OXIDE
     Indication: PRODUCT USED FOR UNKNOWN INDICATION
     Dosage: UNK
     Route: 064
  12. INTELENCE [Suspect]
     Active Substance: ETRAVIRINE
     Indication: HIV INFECTION
     Dosage: UNK, U CUMULATIVE DOSE TO FIRST REACTION(NO.) 484166.7 MG
     Route: 064
  13. PREDNISOLONE. [Concomitant]
     Active Substance: PREDNISOLONE
     Indication: PRODUCT USED FOR UNKNOWN INDICATION
     Dosage: UNK
     Route: 064

REACTIONS (26)
  - Spina bifida [Unknown]
  - Genitalia external ambiguous [Unknown]
  - Fibrosis [Unknown]
  - Lipodystrophy acquired [Not Recovered/Not Resolved]
  - Congenital genital malformation [Unknown]
  - Tethered cord syndrome [Unknown]
  - Spine malformation [Unknown]
  - Blood iron decreased [Unknown]
  - Sepsis neonatal [Unknown]
  - Anal atresia [Unknown]
  - Meconium stain [Unknown]
  - Foetal exposure during pregnancy [Unknown]
  - Congenital anomaly [Unknown]
  - Neural tube defect [Unknown]
  - Gastrointestinal disorder congenital [Unknown]
  - Meningomyelocele [Unknown]
  - Erythema [Unknown]
  - Congenital musculoskeletal anomaly [Recovered/Resolved]
  - Bladder agenesis [Recovered/Resolved with Sequelae]
  - Anencephaly [Unknown]
  - Congenital ectopic bladder [Unknown]
  - Cloacal exstrophy [Recovered/Resolved with Sequelae]
  - Cloacal exstrophy [Unknown]
  - Gastrointestinal malformation [Unknown]
  - Umbilical cord abnormality [Unknown]
  - Bladder agenesis [Unknown]

NARRATIVE: CASE EVENT DATE: 20080614
